FAERS Safety Report 16336533 (Version 2)
Quarter: 2019Q2

REPORT INFORMATION
  Report Type: Spontaneous
  Country: NL (occurrence: NL)
  Receive Date: 20190521
  Receipt Date: 20190607
  Transmission Date: 20190711
  Serious: Yes (Other)
  Sender: FDA-Public Use
  Company Number: NL-AUROBINDO-AUR-APL-2019-028566

PATIENT

DRUGS (4)
  1. ENALAPRIL MALEAAT AUROBINDO 20 MG, TABLETTEN [Suspect]
     Active Substance: ENALAPRIL MALEATE
     Indication: PRODUCT USED FOR UNKNOWN INDICATION
     Dosage: UNK, VOOHEEN ENALAPRIL MALEAAT TEVA 20MG
     Route: 065
  2. METFORMIN HCL AUROBINDO FILM-COATED TABLETS 500MG [Suspect]
     Active Substance: METFORMIN HYDROCHLORIDE
     Indication: PRODUCT USED FOR UNKNOWN INDICATION
     Dosage: UNK, VOORHEEN METFORMINE TEVA 500MG
     Route: 065
  3. METOPROLOLSUCCINAAT SANDOZ [Suspect]
     Active Substance: METOPROLOL SUCCINATE
     Indication: PRODUCT USED FOR UNKNOWN INDICATION
     Dosage: UNK, FORMERLY METOPROLOL TARTRATE RETARD CF 200MG
     Route: 065
  4. OMEPRAZOL AURO 40 MG GASTRO-RESISTANT CAPSULES [Suspect]
     Active Substance: OMEPRAZOLE
     Indication: PRODUCT USED FOR UNKNOWN INDICATION
     Dosage: UNK, VOORHEEN OMEPRAZOL FOCUS 40MG
     Route: 065

REACTIONS (7)
  - Peripheral swelling [Unknown]
  - Therapeutic response unexpected [Unknown]
  - Pain [Unknown]
  - Palpitations [Unknown]
  - Diarrhoea [Unknown]
  - Anxiety [Unknown]
  - Hypertension [Unknown]
